FAERS Safety Report 10154464 (Version 1)
Quarter: 2014Q2

REPORT INFORMATION
  Report Type: Report from Study
  Country: US (occurrence: US)
  Receive Date: 20140506
  Receipt Date: 20140506
  Transmission Date: 20141212
  Serious: Yes (Other)
  Sender: FDA-Public Use
  Company Number: US-ROCHE-1392521

PATIENT
  Age: 16 Year
  Sex: Male
  Weight: 58.4 kg

DRUGS (2)
  1. NUTROPIN AQ [Suspect]
     Indication: FAILURE TO THRIVE
     Dosage: 2.4 ALT WITH 2.6 MG
     Route: 058
  2. ERGOCALCIFEROL [Concomitant]
     Dosage: 2000 UNIT
     Route: 048

REACTIONS (3)
  - Injection site mass [Unknown]
  - Elbow operation [Unknown]
  - Hand fracture [Unknown]
